FAERS Safety Report 7558948-5 (Version None)
Quarter: 2011Q2

REPORT INFORMATION
  Report Type: 
  Country: None (occurrence: None)
  Receive Date: 20110621
  Receipt Date: 20110613
  Transmission Date: 20111010
  Serious: Yes (Other)
  Sender: FDA-Public Use
  Company Number: CN-ASTELLAS-2011US002999

PATIENT
  Age: 45 Year
  Sex: Male

DRUGS (3)
  1. TARCEVA [Suspect]
     Indication: PANCREATIC CARCINOMA METASTATIC
     Dosage: 150 MG, UID/QD
     Dates: start: 20110501, end: 20110610
  2. GEMCITABINE [Concomitant]
     Indication: PRODUCT USED FOR UNKNOWN INDICATION
     Dosage: 1.4 G, UNKNOWN/D
     Route: 041
     Dates: start: 20110511
  3. CHINESE MEDICINE NOS [Concomitant]
     Indication: PRODUCT USED FOR UNKNOWN INDICATION
     Dosage: UNK
     Route: 065

REACTIONS (4)
  - PYREXIA [None]
  - CONFUSIONAL STATE [None]
  - WHITE BLOOD CELL COUNT DECREASED [None]
  - SPEECH DISORDER [None]
